FAERS Safety Report 24790798 (Version 1)
Quarter: 2024Q4

REPORT INFORMATION
  Report Type: Spontaneous
  Country: AU (occurrence: AU)
  Receive Date: 20241230
  Receipt Date: 20241230
  Transmission Date: 20250115
  Serious: Yes (Hospitalization)
  Sender: INTERCHEM
  Company Number: AU-HQ SPECIALTY-AU-2024INT000112

PATIENT
  Age: 52 Year
  Sex: Female

DRUGS (8)
  1. DEXMEDETOMIDINE HYDROCHLORIDE [Suspect]
     Active Substance: DEXMEDETOMIDINE HYDROCHLORIDE
     Indication: Product used for unknown indication
     Dosage: 0.5 MICROGRAM/KILOGRAM, 1 MIN
     Route: 065
     Dates: start: 20241002
  2. VECURONIUM [Suspect]
     Active Substance: VECURONIUM BROMIDE
     Indication: Product used for unknown indication
     Dosage: 10 MILLIGRAM, UNK
     Route: 065
     Dates: start: 20241002
  3. CEFAZOLIN [Suspect]
     Active Substance: CEFAZOLIN
     Indication: Product used for unknown indication
     Dosage: 2 GRAM, UNK
     Route: 065
     Dates: start: 20241002
  4. CHLORHEXIDINE [Suspect]
     Active Substance: CHLORHEXIDINE
     Indication: Product used for unknown indication
     Dosage: UNK
     Route: 065
     Dates: start: 20241002
  5. INDOCYANINE GREEN [Suspect]
     Active Substance: INDOCYANINE GREEN
     Indication: Product used for unknown indication
     Dosage: UNK
     Route: 065
  6. METRONIDAZOLE [Suspect]
     Active Substance: METRONIDAZOLE
     Indication: Product used for unknown indication
     Dosage: 500 MILLIGRAM, UNK
     Route: 065
     Dates: start: 20241002
  7. FENTANYL [Concomitant]
     Active Substance: FENTANYL
     Indication: Endotracheal intubation
     Dosage: 100 MICROGRAM
     Route: 065
     Dates: start: 20241002
  8. PROPOFOL [Concomitant]
     Active Substance: PROPOFOL
     Indication: Endotracheal intubation
     Dosage: UNK, VIA TCI PUMP
     Route: 065
     Dates: start: 20241002

REACTIONS (1)
  - Anaphylactic reaction [Recovered/Resolved]

NARRATIVE: CASE EVENT DATE: 20241002
